FAERS Safety Report 9624156 (Version 2)
Quarter: 2013Q4

REPORT INFORMATION
  Report Type: Report from Study
  Country: AU (occurrence: AU)
  Receive Date: 20131015
  Receipt Date: 20131018
  Transmission Date: 20140711
  Serious: Yes (Death, Other)
  Sender: FDA-Public Use
  Company Number: AU-ASTRAZENECA-2013SE75814

PATIENT
  Age: 20195 Day
  Sex: Female

DRUGS (12)
  1. AZD6140 [Suspect]
     Indication: ACUTE MYOCARDIAL INFARCTION
     Dosage: 180 MG LOADING DOSE IN PRE HOSPITAL
     Route: 048
     Dates: start: 20130921, end: 20130921
  2. AZD6140 [Suspect]
     Indication: ACUTE MYOCARDIAL INFARCTION
     Route: 048
     Dates: start: 20130921
  3. ASPIRIN [Concomitant]
     Route: 048
     Dates: start: 20130921, end: 20130921
  4. ASPIRIN [Concomitant]
     Route: 048
     Dates: start: 20130922
  5. DOTHIEPIN [Concomitant]
     Route: 048
  6. PANTOPRAZOLE [Concomitant]
     Route: 048
  7. VENTOLIN [Concomitant]
     Route: 055
  8. GLYCERYL TRINITRATE [Concomitant]
     Route: 060
     Dates: start: 20130921
  9. METOPROLOL [Concomitant]
     Route: 048
     Dates: start: 20130921
  10. PERINDOPRIL [Concomitant]
     Route: 048
     Dates: start: 20130921
  11. ATORVASTATIN [Concomitant]
     Route: 048
     Dates: start: 20130921
  12. NICOTINE [Concomitant]
     Dates: start: 20130921

REACTIONS (1)
  - Sudden death [Fatal]
